FAERS Safety Report 23123780 (Version 1)
Quarter: 2023Q4

REPORT INFORMATION
  Report Type: Spontaneous
  Country: JP (occurrence: None)
  Receive Date: 20231030
  Receipt Date: 20231030
  Transmission Date: 20240109
  Serious: Yes (Hospitalization)
  Sender: FDA-Public Use
  Company Number: JP-ROCHE-3447524

PATIENT

DRUGS (1)
  1. XOFLUZA [Suspect]
     Active Substance: BALOXAVIR MARBOXIL
     Indication: Influenza
     Route: 048
     Dates: start: 202309, end: 202309

REACTIONS (3)
  - Jaundice [Unknown]
  - Abdominal pain [Unknown]
  - Lithiasis [Unknown]

NARRATIVE: CASE EVENT DATE: 20230901
